FAERS Safety Report 6422864-2 (Version None)
Quarter: 2009Q4

REPORT INFORMATION
  Report Type: 
  Country: None (occurrence: None)
  Receive Date: 20091102
  Receipt Date: 20091021
  Transmission Date: 20100525
  Serious: Yes (Other)
  Sender: FDA-Public Use
  Company Number: US-ROCHE-664128

PATIENT
  Age: 67 Year
  Sex: Female
  Weight: 68 kg

DRUGS (11)
  1. TAMIFLU [Suspect]
     Route: 048
     Dates: start: 20091020, end: 20091021
  2. OXYGEN [Concomitant]
  3. COREG [Concomitant]
  4. DIGOXIN [Concomitant]
  5. TRILIPIX [Concomitant]
  6. PROZAC [Concomitant]
  7. VALIUM [Concomitant]
  8. PLAVIX [Concomitant]
  9. TORASEMIDE [Concomitant]
  10. POTASSIUM CHLORIDE [Concomitant]
  11. CALCIUM [Concomitant]

REACTIONS (4)
  - CONFUSIONAL STATE [None]
  - DIZZINESS [None]
  - HEART RATE INCREASED [None]
  - HEART RATE IRREGULAR [None]
